FAERS Safety Report 19921106 (Version 1)
Quarter: 2021Q4

REPORT INFORMATION
  Report Type: Spontaneous
  Country: CN (occurrence: CN)
  Receive Date: 20211005
  Receipt Date: 20211005
  Transmission Date: 20220304
  Serious: Yes (Other)
  Sender: FDA-Public Use
  Company Number: CN-BAXTER-2021BAX026964

PATIENT
  Age: 38 Year
  Sex: Female
  Weight: 52 kg

DRUGS (6)
  1. CYCLOPHOSPHAMIDE [Suspect]
     Active Substance: CYCLOPHOSPHAMIDE
     Indication: Invasive ductal breast carcinoma
     Dosage: CYCLOPHOSPHAMIDE FOR INJECTION 0.8G + 0.9% NS 500ML
     Route: 041
     Dates: start: 20201106, end: 20201106
  2. SODIUM CHLORIDE [Suspect]
     Active Substance: SODIUM CHLORIDE
     Indication: Medication dilution
     Dosage: CYCLOPHOSPHAMIDE FOR INJECTION 0.8G + 0.9% NS 500ML
     Route: 041
     Dates: start: 20201106, end: 20201106
  3. SODIUM CHLORIDE [Suspect]
     Active Substance: SODIUM CHLORIDE
     Dosage: EPIRUBICIN HYDROCHLORIDE FOR INJECTION 75MG + 0.9% NS 250ML
     Route: 041
     Dates: start: 20201106, end: 20201106
  4. SODIUM CHLORIDE [Suspect]
     Active Substance: SODIUM CHLORIDE
     Dosage: DOCETAXEL INJECTION 120MG + 0.9% NS 250ML
     Route: 041
     Dates: start: 20201106, end: 20201106
  5. EPIRUBICIN HYDROCHLORIDE [Suspect]
     Active Substance: EPIRUBICIN HYDROCHLORIDE
     Indication: Invasive ductal breast carcinoma
     Dosage: EPIRUBICIN HYDROCHLORIDE FOR INJECTION 75MG + 0.9% NS 250ML
     Route: 041
     Dates: start: 20201106, end: 20201106
  6. DOCETAXEL [Suspect]
     Active Substance: DOCETAXEL
     Indication: Invasive ductal breast carcinoma
     Dosage: DOCETAXEL INJECTION 120MG + 0.9% NS 250ML
     Route: 041
     Dates: start: 20201106, end: 20201106

REACTIONS (2)
  - White blood cell count decreased [Recovering/Resolving]
  - Neutrophil count decreased [Recovering/Resolving]

NARRATIVE: CASE EVENT DATE: 20201109
